FAERS Safety Report 21446983 (Version 1)
Quarter: 2022Q4

REPORT INFORMATION
  Report Type: Spontaneous
  Country: DE (occurrence: DE)
  Receive Date: 20221012
  Receipt Date: 20221012
  Transmission Date: 20230113
  Serious: Yes (Hospitalization)
  Sender: FDA-Public Use
  Company Number: DE-ADRED-07738-01

PATIENT
  Age: 51 Year
  Sex: Female

DRUGS (5)
  1. CIPROFLOXACIN [Suspect]
     Active Substance: CIPROFLOXACIN
     Indication: Product used for unknown indication
     Route: 065
  2. CLINDAMYCIN [Suspect]
     Active Substance: CLINDAMYCIN
     Indication: Product used for unknown indication
     Route: 065
  3. PANTOPRAZOLE SODIUM [Concomitant]
     Active Substance: PANTOPRAZOLE SODIUM
     Indication: Product used for unknown indication
     Dosage: 40 MILLIGRAM DAILY; 1-0-0-0, UNIT DOSE : 40 MG, FREQUENCY ; 1 , FREQUENCY TIME : 1 DAYS,
  4. PREDNISONE [Concomitant]
     Active Substance: PREDNISONE
     Indication: Product used for unknown indication
     Dosage: 75 MILLIGRAM DAILY; 1-0-0-0,UNIT DOSE : 75 MG, FREQUENCY ; 1 , FREQUENCY TIME : 1 DAYS,
  5. CETIRIZINE HYDROCHLORIDE [Concomitant]
     Active Substance: CETIRIZINE HYDROCHLORIDE
     Indication: Product used for unknown indication
     Dosage: 30 MILLIGRAM DAILY; 1-1-1-0, UNIT DOSE : 10 MG, FREQUENCY ; 3 , FREQUENCY TIME : 1 DAYS,

REACTIONS (3)
  - Rash [Unknown]
  - Pruritus [Unknown]
  - Oropharyngeal discomfort [Unknown]
